FAERS Safety Report 7901054-8 (Version None)
Quarter: 2011Q4

REPORT INFORMATION
  Report Type: 
  Country: None (occurrence: None)
  Receive Date: 20111108
  Receipt Date: 20111103
  Transmission Date: 20120403
  Serious: Yes (Other)
  Sender: FDA-Public Use
  Company Number: US-TEVA-307754USA

PATIENT
  Sex: Female

DRUGS (4)
  1. ACYCLOVIR [Concomitant]
     Dosage: 800 MILLIGRAM;
     Route: 048
  2. VENLAFAXINE [Suspect]
     Indication: DEPRESSION
     Dosage: 37.5 MILLIGRAM;
     Route: 048
     Dates: start: 20111027, end: 20111027
  3. THYROID THERAPY [Concomitant]
  4. CHOLESTEROL [Concomitant]

REACTIONS (3)
  - PARALYSIS [None]
  - NAUSEA [None]
  - BACK PAIN [None]
